FAERS Safety Report 13753800 (Version 1)
Quarter: 2017Q3

REPORT INFORMATION
  Report Type: Report from Study
  Country: None (occurrence: CA)
  Receive Date: 20170713
  Receipt Date: 20170713
  Transmission Date: 20171127
  Serious: Yes (Other)
  Sender: FDA-Public Use
  Company Number: CA-ABBVIE-17P-028-2037644-00

PATIENT
  Sex: Male
  Weight: 95 kg

DRUGS (2)
  1. HOLKIRA PAK [Suspect]
     Active Substance: DASABUVIR\OMBITASVIR\PARITAPREVIR\RITONAVIR
     Indication: HEPATITIS C
     Dosage: PARITAPREVIR/R OMBITASVIR:150/100/25MG, DASABUVIR 250 MG
     Route: 048
     Dates: start: 20170411
  2. MODERIBA [Suspect]
     Active Substance: RIBAVIRIN
     Indication: HEPATITIS C
     Route: 048
     Dates: start: 20170411

REACTIONS (6)
  - Muscle spasms [Unknown]
  - Nausea [Unknown]
  - Vomiting [Unknown]
  - Chromaturia [Unknown]
  - Hepatic enzyme increased [Recovering/Resolving]
  - Abdominal pain [Unknown]

NARRATIVE: CASE EVENT DATE: 20170705
